FAERS Safety Report 6183836-9 (Version None)
Quarter: 2009Q2

REPORT INFORMATION
  Report Type: 
  Country: None (occurrence: None)
  Receive Date: 20090506
  Receipt Date: 20090506
  Transmission Date: 20091009
  Serious: Yes (Other)
  Sender: FDA-Public Use
  Company Number: None

PATIENT
  Age: 47 Year
  Sex: Male

DRUGS (4)
  1. LAMOTRIGINE [Suspect]
     Indication: BIPOLAR DISORDER
     Dosage: 1-HS
     Dates: start: 20090107, end: 20090305
  2. LAMOTRIGINE [Suspect]
     Indication: BIPOLAR DISORDER
     Dosage: 1-HS
     Dates: start: 20070821
  3. LAMOTRIGINE [Suspect]
     Dates: start: 20090323, end: 20090423
  4. TOPROL CREAM [Concomitant]

REACTIONS (6)
  - ANGER [None]
  - DEPRESSION [None]
  - MOOD ALTERED [None]
  - PRODUCT SUBSTITUTION ISSUE [None]
  - RASH GENERALISED [None]
  - RASH PRURITIC [None]
